FAERS Safety Report 9458953 (Version 4)
Quarter: 2013Q3

REPORT INFORMATION
  Report Type: Spontaneous
  Country: US (occurrence: US)
  Receive Date: 20130814
  Receipt Date: 20130830
  Transmission Date: 20140515
  Serious: Yes (Other)
  Sender: FDA-Public Use
  Company Number: US-009507513-1308USA002624

PATIENT
  Age: 24 Year
  Sex: Female
  Weight: 92.63 kg

DRUGS (1)
  1. IMPLANON [Suspect]
     Indication: CONTRACEPTION
     Dosage: 1 ROD EVERY 3 YEARS
     Route: 059
     Dates: start: 201012, end: 2013

REACTIONS (6)
  - Surgery [Not Recovered/Not Resolved]
  - General anaesthesia [Not Recovered/Not Resolved]
  - Device deployment issue [Recovered/Resolved]
  - Device difficult to use [Recovered/Resolved]
  - Adverse event [Unknown]
  - Medical device complication [Recovered/Resolved]
